FAERS Safety Report 17284220 (Version 1)
Quarter: 2020Q1

REPORT INFORMATION
  Report Type: Spontaneous
  Country: DK (occurrence: DK)
  Receive Date: 20200117
  Receipt Date: 20200117
  Transmission Date: 20200409
  Serious: Yes (Hospitalization)
  Sender: FDA-Public Use
  Company Number: DK-JNJFOC-20200115738

PATIENT
  Age: 61 Year
  Sex: Male

DRUGS (9)
  1. RIVAROXABAN [Suspect]
     Active Substance: RIVAROXABAN
     Indication: THROMBOSIS PROPHYLAXIS
     Dosage: 20 MG, QD
     Route: 048
     Dates: start: 201303, end: 20191208
  2. KLOPOXID [Concomitant]
     Active Substance: CHLORDIAZEPOXIDE
     Indication: SEDATIVE THERAPY
     Dosage: 10 MG
     Route: 048
     Dates: start: 20141205
  3. PARACETAMOL [Concomitant]
     Active Substance: ACETAMINOPHEN
     Indication: PAIN
     Dosage: 1330 MG
     Route: 048
     Dates: start: 20191205
  4. COLGATE DURAPHAT [Concomitant]
     Active Substance: SODIUM FLUORIDE
     Indication: DENTAL CARIES
     Dosage: 3 DF, QD
     Route: 048
     Dates: start: 20190425
  5. LITHIUM CARBONATE. [Concomitant]
     Active Substance: LITHIUM CARBONATE
     Indication: DEPRESSION
     Dosage: 750 MG, QD
     Route: 048
     Dates: start: 20141205
  6. ANTABUS [Concomitant]
     Active Substance: DISULFIRAM
     Indication: ALCOHOL PROBLEM
     Dosage: 200 MG, QD
     Route: 048
     Dates: start: 20181211
  7. OLODATEROL HYDROCHLORIDE W/TIOTROPI/08916801/ [Concomitant]
     Active Substance: OLODATEROL HYDROCHLORIDE\TIOTROPIUM BROMIDE MONOHYDRATE
     Indication: CHRONIC OBSTRUCTIVE PULMONARY DISEASE
     Dosage: 2 DF, QD
     Route: 055
     Dates: start: 20180502
  8. SALBUTAMOL [Concomitant]
     Active Substance: ALBUTEROL
     Indication: BRONCHOSPASM
     Dosage: 1 DF, QD
     Route: 055
     Dates: start: 20180502
  9. CHAMPIX [Concomitant]
     Active Substance: VARENICLINE TARTRATE
     Dosage: UNK
     Route: 048
     Dates: start: 20190322

REACTIONS (5)
  - Intra-abdominal haemorrhage [Recovered/Resolved]
  - Colonic haematoma [Recovered/Resolved]
  - Colectomy [Unknown]
  - Abdominal pain [Recovered/Resolved]
  - Large intestinal haemorrhage [Recovered/Resolved]

NARRATIVE: CASE EVENT DATE: 20191208
